FAERS Safety Report 6072779-7 (Version None)
Quarter: 2009Q1

REPORT INFORMATION
  Report Type: 
  Country: None (occurrence: None)
  Receive Date: 20090205
  Receipt Date: 20090120
  Transmission Date: 20090719
  Serious: Yes (Hospitalization)
  Sender: FDA-Public Use
  Company Number: 2009S1001100

PATIENT
  Age: 56 Year
  Sex: Female

DRUGS (1)
  1. METOPROLOL TARTRATE [Suspect]
     Dosage: 100 MG; DAILY

REACTIONS (6)
  - ACUTE MYOCARDIAL INFARCTION [None]
  - BRADYCARDIA [None]
  - CORONARY ARTERY STENOSIS [None]
  - LEFT VENTRICULAR DYSFUNCTION [None]
  - LEFT VENTRICULAR HYPERTROPHY [None]
  - STRESS CARDIOMYOPATHY [None]
